FAERS Safety Report 6092673-5 (Version None)
Quarter: 2009Q1

REPORT INFORMATION
  Report Type: 
  Country: None (occurrence: None)
  Receive Date: 20090223
  Receipt Date: 20090223
  Transmission Date: 20090719
  Serious: No
  Sender: FDA-Public Use
  Company Number: None

PATIENT
  Age: 19 Month
  Sex: Female
  Weight: 9.9791 kg

DRUGS (1)
  1. KENALOG [Suspect]
     Indication: ARTHROPOD BITE

REACTIONS (2)
  - INJECTION SITE REACTION [None]
  - SKIN DISORDER [None]
